FAERS Safety Report 8741986 (Version 2)
Quarter: 2013Q4

REPORT INFORMATION
  Report Type: Report from Study
  Country: US (occurrence: US)
  Receive Date: 20120824
  Receipt Date: 20131031
  Transmission Date: 20140711
  Serious: Yes (Other)
  Sender: FDA-Public Use
  Company Number: US-009507513-2011SP050631

PATIENT
  Age: 55 Year
  Sex: Male

DRUGS (13)
  1. VICTRELIS [Suspect]
     Indication: HEPATITIS C
     Dosage: 4 DF, TID
     Route: 048
     Dates: start: 201110
  2. VICTRELIS [Suspect]
     Dosage: 200 MG, TID
  3. MK-8908 [Suspect]
     Indication: PRODUCT USED FOR UNKNOWN INDICATION
     Dosage: 1000 MG, QD
     Route: 048
  4. PEGASYS [Suspect]
     Indication: PRODUCT USED FOR UNKNOWN INDICATION
     Dosage: 180 MICROGRAM, UNK
     Route: 058
  5. AMBIEN [Concomitant]
     Dosage: 5 MG, UNK
     Route: 048
  6. TRAZODONE HYDROCHLORIDE [Concomitant]
     Dosage: 50 MG, UNK
     Route: 048
  7. PRAVASTATIN SODIUM [Concomitant]
     Dosage: 10 MG, UNK
     Route: 048
  8. CHOLECALCIFEROL [Concomitant]
     Dosage: 50000 UNITS
     Route: 048
  9. LEVOXYL [Concomitant]
     Dosage: 100 MICROGRAM, UNK
     Route: 048
  10. EPOETIN ALFA [Concomitant]
     Dosage: 10000/ML
  11. NEUPOGEN [Concomitant]
     Dosage: 480/0.8
  12. PROZAC [Concomitant]
     Dosage: 10 MG, UNK
  13. VITAMIN D (UNSPECIFIED) [Concomitant]

REACTIONS (8)
  - Red blood cell count abnormal [Unknown]
  - White blood cell count decreased [Unknown]
  - Dysphonia [Unknown]
  - Dyspnoea [Unknown]
  - Cough [Unknown]
  - Depressed mood [Unknown]
  - Fatigue [Not Recovered/Not Resolved]
  - Pruritus generalised [Not Recovered/Not Resolved]
